FAERS Safety Report 8888076 (Version 1)
Quarter: 2012Q4

REPORT INFORMATION
  Report Type: 
  Country: FR (occurrence: FR)
  Receive Date: 20121106
  Receipt Date: 20121106
  Transmission Date: 20130627
  Serious: Yes (Death, Hospitalization, Other)
  Sender: FDA-Public Use
  Company Number: FR-BRISTOL-MYERS SQUIBB COMPANY-17078700

PATIENT
  Age: 88 Year
  Sex: Female

DRUGS (8)
  1. COUMADIN TABS 2 MG [Suspect]
     Indication: ARRHYTHMIA
     Route: 048
     Dates: end: 20121012
  2. TEMERIT [Concomitant]
     Dosage: 1df= Temerit 5 mg 0.25-units nos
     Route: 048
  3. FUROSEMIDE [Concomitant]
  4. DIFFU-K [Concomitant]
  5. LANTUS [Concomitant]
     Dosage: 1df= 8 units in evening;
  6. HUMALOG [Concomitant]
     Dosage: 1df= 6 units morning, 13 units noon,7 units evening
  7. SPECIAFOLDINE [Concomitant]
  8. PANTOPRAZOLE [Concomitant]

REACTIONS (5)
  - Renal failure acute [Fatal]
  - Renal tubular necrosis [Fatal]
  - Shock haemorrhagic [Fatal]
  - Haematoma [Fatal]
  - Fall [Unknown]
